FAERS Safety Report 16837437 (Version 1)
Quarter: 2019Q3

REPORT INFORMATION
  Report Type: Spontaneous
  Country: GB (occurrence: GB)
  Receive Date: 20190923
  Receipt Date: 20190923
  Transmission Date: 20191005
  Serious: Yes (Other)
  Sender: FDA-Public Use
  Company Number: GB-ADVANZ PHARMA-201909000348

PATIENT

DRUGS (9)
  1. SPIRONOLACTONE. [Concomitant]
     Active Substance: SPIRONOLACTONE
  2. DIGOXIN. [Suspect]
     Active Substance: DIGOXIN
     Dosage: UNK
     Route: 042
     Dates: start: 201805
  3. FUROSEMIDE. [Concomitant]
     Active Substance: FUROSEMIDE
  4. CANDESARTAN CILEXETIL. [Concomitant]
     Active Substance: CANDESARTAN CILEXETIL
  5. DIGOXIN. [Suspect]
     Active Substance: DIGOXIN
     Indication: ARRHYTHMIA
     Dosage: 125 MCG AFTER LOADING INTRAVENOUS
     Route: 048
     Dates: start: 201805
  6. AMIODARONE [Suspect]
     Active Substance: AMIODARONE
     Indication: ARRHYTHMIA
     Dosage: AFTER INITIAL LOADING IV
     Route: 048
     Dates: end: 20190322
  7. AMIODARONE [Suspect]
     Active Substance: AMIODARONE
     Dosage: UNK MG
     Dates: start: 201805
  8. AMIODARONE [Concomitant]
     Active Substance: AMIODARONE
     Indication: ARRHYTHMIA
     Dosage: 200 MG AFTER INITIAL LOADING INTRAVENOUS
     Route: 048
     Dates: start: 201805, end: 20190322
  9. APIXABAN [Concomitant]
     Active Substance: APIXABAN

REACTIONS (1)
  - Increased insulin requirement [Recovered/Resolved]

NARRATIVE: CASE EVENT DATE: 201806
